FAERS Safety Report 4594663-8 (Version None)
Quarter: 2005Q1

REPORT INFORMATION
  Report Type: 
  Country: None (occurrence: None)
  Receive Date: 20050301
  Receipt Date: 20041203
  Transmission Date: 20050727
  Serious: Yes (Other)
  Sender: FDA-Public Use
  Company Number: US-BRISTOL-MYERS SQUIBB COMPANY-12783718

PATIENT
  Age: 42 Year
  Sex: Male
  Weight: 75 kg

DRUGS (15)
  1. ERBITUX [Suspect]
     Indication: RECTAL CANCER METASTATIC
     Dosage: REC'D 350 MG FROM 27-AUG-03, HELD DUE TO RASH
     Route: 042
  2. CAMPTOSAR [Concomitant]
     Route: 042
  3. BENADRYL [Concomitant]
     Indication: PREMEDICATION
     Route: 042
  4. ALOXI [Concomitant]
     Indication: PREMEDICATION
     Route: 042
  5. DECADRON [Concomitant]
     Indication: PREMEDICATION
     Route: 042
  6. PEPCID [Concomitant]
     Indication: PREMEDICATION
     Route: 042
  7. ATROPINE [Concomitant]
     Indication: PREMEDICATION
     Route: 042
  8. ATIVAN [Concomitant]
     Indication: PREMEDICATION
     Route: 042
  9. DURAGESIC PATCH [Concomitant]
  10. AMBIEN [Concomitant]
     Dosage: TAKEN AT BEDTIME (HS)
  11. VICODIN [Concomitant]
     Dosage: EVERY 4 HOURS AS NEEDED (PRN)
  12. PERCOCET [Concomitant]
     Dosage: EVERY 4 HOURS AS NEEDED (PRN)
  13. ATIVAN [Concomitant]
  14. ZOFRAN [Concomitant]
     Indication: NAUSEA
  15. NEURONTIN [Concomitant]

REACTIONS (2)
  - RASH GENERALISED [None]
  - RECTAL CANCER METASTATIC [None]
